FAERS Safety Report 19965473 (Version 10)
Quarter: 2023Q1

REPORT INFORMATION
  Report Type: Spontaneous
  Country: US (occurrence: US)
  Receive Date: 20211018
  Receipt Date: 20230221
  Transmission Date: 20230418
  Serious: No
  Sender: FDA-Public Use
  Company Number: US-PFIZER INC-2021034221

PATIENT
  Age: 70 Year
  Sex: Female

DRUGS (2)
  1. XELJANZ [Suspect]
     Active Substance: TOFACITINIB CITRATE
     Dosage: 5 MG, TWICE A DAY (2 TABLETS A DAY)
  2. XELJANZ [Suspect]
     Active Substance: TOFACITINIB CITRATE
     Dosage: 5 MG, ONCE A DAY (1 TABLET A DAY)

REACTIONS (10)
  - Swelling [Unknown]
  - Limb discomfort [Unknown]
  - Oedema peripheral [Unknown]
  - Illness [Unknown]
  - Pain in extremity [Unknown]
  - Arthritis [Unknown]
  - Pain [Unknown]
  - Musculoskeletal stiffness [Unknown]
  - Peripheral swelling [Unknown]
  - Intentional product misuse [Unknown]
